FAERS Safety Report 9285566 (Version 3)
Quarter: 2015Q1

REPORT INFORMATION
  Report Type: Spontaneous
  Country: CA (occurrence: CA)
  Receive Date: 20130513
  Receipt Date: 20150324
  Transmission Date: 20150721
  Serious: Yes (Death, Hospitalization)
  Sender: FDA-Public Use
  Company Number: CA-ROCHE-1223217

PATIENT
  Sex: Male

DRUGS (7)
  1. XOLAIR [Suspect]
     Active Substance: OMALIZUMAB
     Indication: ASTHMA
     Route: 058
     Dates: start: 20080924
  2. XOLAIR [Suspect]
     Active Substance: OMALIZUMAB
     Route: 058
     Dates: start: 20090331
  3. XOLAIR [Suspect]
     Active Substance: OMALIZUMAB
     Route: 058
     Dates: start: 20100119
  4. XOLAIR [Suspect]
     Active Substance: OMALIZUMAB
     Route: 058
     Dates: start: 20121017
  5. XOLAIR [Suspect]
     Active Substance: OMALIZUMAB
     Route: 058
     Dates: start: 20130206
  6. XOLAIR [Suspect]
     Active Substance: OMALIZUMAB
     Route: 065
  7. XOLAIR [Suspect]
     Active Substance: OMALIZUMAB
     Route: 058

REACTIONS (23)
  - Productive cough [Unknown]
  - Oedema peripheral [Unknown]
  - Blood pressure decreased [Unknown]
  - Arthralgia [Unknown]
  - Myalgia [Unknown]
  - Bronchitis [Unknown]
  - Sputum discoloured [Unknown]
  - Heart rate increased [Unknown]
  - Influenza [Unknown]
  - Sinusitis [Unknown]
  - Sciatica [Unknown]
  - Lung disorder [Unknown]
  - Dysphonia [Unknown]
  - Headache [Unknown]
  - Tachypnoea [Unknown]
  - Asthenia [Unknown]
  - Nausea [Unknown]
  - Death [Fatal]
  - Dyspnoea exertional [Unknown]
  - Wheezing [Unknown]
  - Cough [Unknown]
  - Body temperature decreased [Unknown]
  - Blood pressure increased [Unknown]

NARRATIVE: CASE EVENT DATE: 2013
